FAERS Safety Report 8615775-5 (Version None)
Quarter: 2012Q3

REPORT INFORMATION
  Report Type: 
  Country: None (occurrence: None)
  Receive Date: 20120823
  Receipt Date: 20120820
  Transmission Date: 20120928
  Serious: Yes (Hospitalization)
  Sender: FDA-Public Use
  Company Number: US-GILEAD-2012-0057000

PATIENT
  Sex: Male

DRUGS (2)
  1. LETAIRIS [Suspect]
     Indication: PULMONARY HYPERTENSION
     Dosage: 10 MG, UNK
     Route: 048
     Dates: start: 20100713
  2. LETAIRIS [Suspect]
     Indication: EISENMENGER'S SYNDROME

REACTIONS (3)
  - ATRIAL SEPTAL DEFECT [None]
  - OEDEMA [None]
  - CARDIAC OPERATION [None]
